FAERS Safety Report 17088241 (Version 1)
Quarter: 2019Q4

REPORT INFORMATION
  Report Type: Spontaneous
  Country: FR (occurrence: FR)
  Receive Date: 20191128
  Receipt Date: 20191128
  Transmission Date: 20200122
  Serious: Yes (Other)
  Sender: FDA-Public Use
  Company Number: FR-PFIZER INC-2019510568

PATIENT
  Age: 64 Year
  Sex: Female

DRUGS (7)
  1. KARDEGIC [Suspect]
     Active Substance: ASPIRIN DL-LYSINE
     Indication: MYOCARDIAL ISCHAEMIA
     Dosage: 75 MG, 1X/DAY, (0-0-1)
     Route: 048
     Dates: start: 2017, end: 20190820
  2. DAFLON [DIOSMIN;HESPERIDIN] [Suspect]
     Active Substance: DIOSMIN\HESPERIDIN
     Indication: LYMPHATIC INSUFFICIENCY
     Dosage: 1000 MG, DAILY, (0-1-1)
     Route: 048
     Dates: start: 2017
  3. NATISPRAY [Suspect]
     Active Substance: NITROGLYCERIN
     Indication: ANGINA PECTORIS
     Dosage: 1 DF, AS NEEDED, (1 TO 2 SPRAY) (STRENGTH: 0,30 MG/DOSE)
     Route: 002
     Dates: start: 2017
  4. TAHOR [Suspect]
     Active Substance: ATORVASTATIN CALCIUM
     Indication: CARDIOVASCULAR EVENT PROPHYLAXIS
     Dosage: 20 MG, 1X/DAY
     Route: 048
     Dates: start: 2017, end: 20190820
  5. UVEDOSE [Suspect]
     Active Substance: CHOLECALCIFEROL
     Indication: VITAMIN SUPPLEMENTATION
     Dosage: 100000 IU, EVERY 3 MONTHS (1 VIAL EVERY 3 MONTHS)
     Route: 048
     Dates: start: 2017
  6. PROZAC [Suspect]
     Active Substance: FLUOXETINE HYDROCHLORIDE
     Indication: DEPRESSION
     Dosage: 20 MG, 1X/DAY, (1-0-0)
     Route: 048
     Dates: start: 20151222, end: 20190907
  7. LEXOMIL [Suspect]
     Active Substance: BROMAZEPAM
     Indication: ANXIETY
     Dosage: 6 MG, 1X/DAY, (0-0-1)
     Route: 048
     Dates: start: 20151222

REACTIONS (1)
  - Thrombocytopenia [Not Recovered/Not Resolved]

NARRATIVE: CASE EVENT DATE: 20180925
